FAERS Safety Report 10630170 (Version 1)
Quarter: 2014Q4

REPORT INFORMATION
  Report Type: Spontaneous
  Country: US (occurrence: US)
  Receive Date: 20141205
  Receipt Date: 20141205
  Transmission Date: 20150529
  Serious: No
  Sender: FDA-Public Use
  Company Number: US-BRISTOL-MYERS SQUIBB COMPANY-21015508

PATIENT
  Age: 67 Year
  Sex: Male
  Weight: 107.93 kg

DRUGS (1)
  1. BYDUREON [Suspect]
     Active Substance: EXENATIDE
     Indication: GLUCOSE TOLERANCE IMPAIRED

REACTIONS (5)
  - Inflammation [Unknown]
  - Injection site pruritus [Unknown]
  - Weight decreased [Unknown]
  - Dyspepsia [Unknown]
  - Erythema [Unknown]
